FAERS Safety Report 5274166-8 (Version None)
Quarter: 2007Q1

REPORT INFORMATION
  Report Type: 
  Country: None (occurrence: None)
  Receive Date: 20070323
  Receipt Date: 20070312
  Transmission Date: 20070707
  Serious: Yes (Other)
  Sender: FDA-Public Use
  Company Number: US-SHR-US-2006-018730

PATIENT
  Age: 75 Year
  Sex: Male
  Weight: 103 kg

DRUGS (43)
  1. MAGNEVIST [Suspect]
     Indication: NUCLEAR MAGNETIC RESONANCE IMAGING
     Dosage: 29 ML, 1 DOSE (ESTIMATED)
     Route: 042
     Dates: start: 20050623, end: 20050623
  2. MAGNEVIST [Suspect]
     Dosage: 28 ML, 1 DOSE
     Route: 042
     Dates: start: 20050907, end: 20050907
  3. FUROSEMIDE [Concomitant]
     Dosage: 80 MG, 2X/DAY
     Route: 048
     Dates: end: 20050801
  4. FUROSEMIDE [Concomitant]
     Dosage: 120 MG, 3X/DAY X 2DAYS
     Dates: start: 20050801, end: 20050801
  5. FUROSEMIDE [Concomitant]
     Dosage: 80 MG, MORNING
     Route: 048
     Dates: start: 20050902
  6. FUROSEMIDE [Concomitant]
     Dosage: 40 MG, EVENING
     Route: 048
     Dates: start: 20050902, end: 20060213
  7. FUROSEMIDE [Concomitant]
     Dosage: 40 MG, 2X/DAY
     Route: 048
     Dates: start: 20060213
  8. COREG [Concomitant]
     Dosage: 25 MG, 2X/DAY
     Route: 048
     Dates: end: 20050902
  9. COREG [Concomitant]
     Dosage: 12.5 MG, 2X/DAY
     Route: 048
     Dates: start: 20050902
  10. ENALAPRIL MALEATE [Concomitant]
     Dosage: 20 MG, 2X/DAY
     Route: 048
  11. NIACIN [Concomitant]
     Dosage: 100 MG, 1X/DAY
     Route: 048
  12. COUMADIN [Concomitant]
     Dosage: 10 MG, 2X/WEEK
     Route: 048
     Dates: start: 20020301
  13. COUMADIN [Concomitant]
     Dosage: 15 MG, 5X/WEEK
     Route: 048
     Dates: end: 20050915
  14. COUMADIN [Concomitant]
     Dosage: 7.5 MG, 1X/DAY
     Route: 048
     Dates: start: 20050915, end: 20051018
  15. COUMADIN [Concomitant]
     Dosage: 5 MG, 3X/WEEK
     Route: 048
     Dates: start: 20051018, end: 20051122
  16. COUMADIN [Concomitant]
     Dosage: 2.5 MG, 4X/WEEK
     Dates: start: 20051018, end: 20051122
  17. COUMADIN [Concomitant]
     Dosage: 7.5 MG, 1X/DAY
     Route: 048
     Dates: start: 20051122, end: 20051222
  18. COUMADIN [Concomitant]
     Dosage: 7.5 MG, 3X/WEEK
     Route: 048
     Dates: start: 20051222, end: 20060202
  19. COUMADIN [Concomitant]
     Dosage: 10 MG, 4X/WEEK
     Route: 048
     Dates: start: 20051222, end: 20060202
  20. COUMADIN [Concomitant]
     Dosage: 10 MG, 1X/DAY
     Route: 048
     Dates: start: 20060202
  21. ZOCOR [Concomitant]
     Dosage: 40 MG, 1X/DAY
     Route: 048
  22. HUMULIN N [Concomitant]
     Dosage: 30 U, BREAKFAST/DINNER
     Route: 058
     Dates: end: 20050801
  23. HUMULIN N [Concomitant]
     Dosage: 15 U, BREAKFAST/DINNER
     Route: 058
     Dates: start: 20050801, end: 20050902
  24. HUMULIN N [Concomitant]
     Dosage: 20 U, BREAKFAST/DINNER
     Route: 058
     Dates: start: 20050902, end: 20051122
  25. HUMULIN N [Concomitant]
     Dosage: 5-10U, BREAKFAST/DINNER
     Dates: start: 20051122, end: 20060110
  26. HUMULIN N [Concomitant]
     Dosage: 8 U, BREAKFAST
     Route: 058
     Dates: start: 20060110
  27. HUMULIN N [Concomitant]
     Dosage: 10 U, DINNER
     Route: 058
     Dates: start: 20060110
  28. NPH INSULIN [Concomitant]
     Dosage: 20-35 U, BREAKFAST/DINNER
     Route: 058
     Dates: end: 20050801
  29. NPH INSULIN [Concomitant]
     Dosage: 15 U, BREAKFAST/DINNER
     Route: 058
     Dates: start: 20050804
  30. NPH INSULIN [Concomitant]
     Dosage: 8 U, BREAKFAST/DINNER
     Route: 058
     Dates: start: 20051018
  31. NORVASC [Concomitant]
     Dosage: 5 MG, 1X/DAY
  32. AVAPRO [Concomitant]
     Dosage: 150 MG, 1X/DAY
     Route: 048
  33. PREVACID [Concomitant]
     Dosage: 30 MG, 1X/DAY
     Dates: start: 20050801
  34. ZAROXOLYN [Concomitant]
     Dosage: 2.5 MG, 3X/WEEK
     Route: 048
     Dates: start: 20050801, end: 20050902
  35. ZAROXOLYN [Concomitant]
     Dosage: 2.5 MG, 2X/WEEK
     Route: 048
     Dates: start: 20050902
  36. TRENTAL ^AVENTIS PHARMA^ [Concomitant]
     Dosage: 400 MG, 3X/DAY
     Route: 048
     Dates: start: 20050818
  37. REGULAR INSULIN [Concomitant]
     Dosage: 15 OTHER, 2X/DAY
     Route: 058
     Dates: start: 20050902, end: 20050915
  38. REGULAR INSULIN [Concomitant]
     Dosage: SLIDING SCALE, AC
     Route: 058
     Dates: start: 20050915
  39. EPOGEN [Concomitant]
     Dosage: 5000U
     Dates: start: 20050915
  40. EPOGEN [Concomitant]
     Dosage: 6000 U
     Dates: start: 20051122
  41. EPOGEN [Concomitant]
     Dosage: 4500 U
     Dates: start: 20051222
  42. EPOGEN [Concomitant]
     Dosage: 6700, 2X/WEEK
     Dates: start: 20060110
  43. PRILOSEC [Concomitant]
     Dosage: 30 MG, 1X/DAY
     Route: 048
     Dates: start: 20050101

REACTIONS (2)
  - NEPHROGENIC FIBROSING DERMOPATHY [None]
  - RENAL FAILURE ACUTE [None]
